FAERS Safety Report 24129663 (Version 1)
Quarter: 2024Q3

REPORT INFORMATION
  Report Type: Spontaneous
  Country: BE (occurrence: BE)
  Receive Date: 20240724
  Receipt Date: 20240724
  Transmission Date: 20241016
  Serious: Yes (Death, Hospitalization)
  Sender: NOVITIUM PHARMA
  Company Number: BE-NOVITIUMPHARMA-2024BENVP01349

PATIENT
  Age: 52 Year
  Sex: Female

DRUGS (2)
  1. LEVOFLOXACIN [Suspect]
     Active Substance: LEVOFLOXACIN
     Indication: Bacteraemia
  2. MEROPENEM [Concomitant]
     Active Substance: MEROPENEM
     Indication: Bacteraemia

REACTIONS (1)
  - Drug ineffective [Fatal]
